FAERS Safety Report 4920604-7 (Version None)
Quarter: 2006Q1

REPORT INFORMATION
  Report Type: 
  Country: None (occurrence: None)
  Receive Date: 20060223
  Receipt Date: 20051017
  Transmission Date: 20060701
  Serious: Yes (Life-Threatening)
  Sender: FDA-Public Use
  Company Number: AU-ROCHE-421480

PATIENT
  Age: 57 Year
  Sex: Male

DRUGS (1)
  1. ROCEPHIN [Suspect]
     Indication: INFECTION
     Dosage: DOSAGE REGIMEN REPORTED AS STAT
     Route: 042
     Dates: start: 20051014, end: 20051014

REACTIONS (1)
  - ANAPHYLACTIC REACTION [None]
